FAERS Safety Report 7297687-5 (Version None)
Quarter: 2011Q1

REPORT INFORMATION
  Report Type: 
  Country: None (occurrence: None)
  Receive Date: 20110216
  Receipt Date: 20110209
  Transmission Date: 20110831
  Serious: Yes (Hospitalization, Other)
  Sender: FDA-Public Use
  Company Number: DE-BRISTOL-MYERS SQUIBB COMPANY-15423528

PATIENT
  Age: 19 Year
  Sex: Male
  Weight: 52 kg

DRUGS (1)
  1. ABILIFY [Suspect]
     Dosage: LATER 2.5MG WAS ADMINISTERED.

REACTIONS (7)
  - STRESS [None]
  - DEPRESSED MOOD [None]
  - SUICIDAL IDEATION [None]
  - MALAISE [None]
  - DISSOCIATION [None]
  - HALLUCINATION, AUDITORY [None]
  - HYPERTENSIVE CRISIS [None]
